FAERS Safety Report 8224244-6 (Version None)
Quarter: 2012Q1

REPORT INFORMATION
  Report Type: 
  Country: None (occurrence: None)
  Receive Date: 20120319
  Receipt Date: 20120309
  Transmission Date: 20120608
  Serious: Yes (Hospitalization, Other)
  Sender: FDA-Public Use
  Company Number: TPA2012A01396

PATIENT
  Age: 62 Year
  Sex: Female
  Weight: 72.5755 kg

DRUGS (9)
  1. CARDIA (AJMALINE) [Concomitant]
  2. LASIX [Concomitant]
  3. ULORIC [Suspect]
     Indication: GOUT
     Dosage: 40 MG, 1 IN 1 D,PER ORAL
     Route: 048
     Dates: start: 20111001, end: 20120201
  4. COLCRYS [Suspect]
     Indication: GOUT
     Dosage: PRN, PER ORAL
     Route: 048
  5. COLCRYS [Suspect]
     Indication: CONDITION AGGRAVATED
     Dosage: PRN, PER ORAL
     Route: 048
  6. QUINAPRIL HCL [Concomitant]
  7. NSAIDS (ALL OTHER NON-THERAPEUTIC PRODUCTS) [Concomitant]
  8. HYDROCHLOROTHIAZIDE [Concomitant]
  9. ASPIRIN [Concomitant]

REACTIONS (10)
  - DIARRHOEA [None]
  - BALANCE DISORDER [None]
  - FOOD POISONING [None]
  - ALOPECIA [None]
  - GOUT [None]
  - WHITE BLOOD CELL COUNT INCREASED [None]
  - FALL [None]
  - CONDITION AGGRAVATED [None]
  - GOUTY ARTHRITIS [None]
  - FOOT FRACTURE [None]
